FAERS Safety Report 15395062 (Version 1)
Quarter: 2018Q3

REPORT INFORMATION
  Report Type: Spontaneous
  Country: JP (occurrence: JP)
  Receive Date: 20180918
  Receipt Date: 20180918
  Transmission Date: 20181010
  Serious: Yes (Other)
  Sender: FDA-Public Use
  Company Number: JP-ORION CORPORATION ORION PHARMA-ENTC2018-0280

PATIENT
  Age: 71 Year
  Sex: Male

DRUGS (1)
  1. STALEVO [Suspect]
     Active Substance: CARBIDOPA\ENTACAPONE\LEVODOPA
     Indication: PARKINSON^S DISEASE
     Route: 048

REACTIONS (4)
  - Parkinson^s disease [Not Recovered/Not Resolved]
  - Product use complaint [Unknown]
  - Product size issue [Unknown]
  - Product quality issue [Unknown]
